FAERS Safety Report 18253219 (Version 4)
Quarter: 2020Q4

REPORT INFORMATION
  Report Type: Report from Study
  Country: HU (occurrence: HU)
  Receive Date: 20200910
  Receipt Date: 20201210
  Transmission Date: 20210113
  Serious: Yes (Hospitalization)
  Sender: FDA-Public Use
  Company Number: NVSC2020HU246750

PATIENT
  Age: 33 Year
  Sex: Male

DRUGS (1)
  1. MAYZENT [Suspect]
     Active Substance: SIPONIMOD
     Indication: MULTIPLE SCLEROSIS
     Dosage: 2 MG
     Route: 048
     Dates: start: 20200721, end: 20200827

REACTIONS (10)
  - Insomnia [Recovered/Resolved]
  - Sleep disorder [Unknown]
  - Dehydration [Unknown]
  - Lymphocyte count decreased [Recovering/Resolving]
  - Platelet count decreased [Unknown]
  - Pyrexia [Recovered/Resolved]
  - Asthenia [Unknown]
  - White blood cell count decreased [Recovered/Resolved]
  - Dysarthria [Unknown]
  - Eating disorder [Unknown]

NARRATIVE: CASE EVENT DATE: 202008
